FAERS Safety Report 5949996-7 (Version None)
Quarter: 2008Q4

REPORT INFORMATION
  Report Type: 
  Country: None (occurrence: None)
  Receive Date: 20081112
  Receipt Date: 20081104
  Transmission Date: 20090506
  Serious: Yes (Hospitalization)
  Sender: FDA-Public Use
  Company Number: US-ABBOTT-08P-163-0485391-00

PATIENT
  Sex: Male
  Weight: 111.23 kg

DRUGS (4)
  1. HUMIRA [Suspect]
     Indication: CROHN'S DISEASE
     Route: 058
     Dates: start: 20080220
  2. MERCAPTOPURINE [Concomitant]
     Indication: CROHN'S DISEASE
     Dosage: DOSAGE INCREASED
     Route: 048
     Dates: start: 20070101
  3. MERCAPTOPURINE [Concomitant]
     Route: 048
     Dates: start: 20080101
  4. MESALAMINE [Concomitant]
     Indication: DRUG USE FOR UNKNOWN INDICATION
     Route: 048

REACTIONS (5)
  - CHOLELITHIASIS [None]
  - CROHN'S DISEASE [None]
  - DYSURIA [None]
  - GALLBLADDER DISORDER [None]
  - NEPHROLITHIASIS [None]
